FAERS Safety Report 13374144 (Version 1)
Quarter: 2017Q1

REPORT INFORMATION
  Report Type: Spontaneous
  Country: DE (occurrence: DE)
  Receive Date: 20170327
  Receipt Date: 20170327
  Transmission Date: 20170429
  Serious: Yes (Hospitalization)
  Sender: FDA-Public Use
  Company Number: DE-009507513-1702DEU001997

PATIENT
  Age: 34 Year
  Sex: Female
  Weight: 52.3 kg

DRUGS (7)
  1. BUDESONIDE. [Concomitant]
     Active Substance: BUDESONIDE
     Indication: COLITIS ULCERATIVE
     Dosage: 9 MG, QD
     Route: 048
     Dates: start: 20160730
  2. CELESTAN [Suspect]
     Active Substance: BETAMETHASONE
     Indication: MATERNAL THERAPY TO ENHANCE FOETAL LUNG MATURITY
     Dosage: 12 MG, UNK
     Route: 030
     Dates: start: 20170123, end: 20170124
  3. SIMPONI [Suspect]
     Active Substance: GOLIMUMAB
     Dosage: 150 MG, EVERY THREE WEEKS
     Route: 058
     Dates: start: 20151106
  4. SIMPONI [Suspect]
     Active Substance: GOLIMUMAB
     Dosage: 150 MG, EVERY THREE WEEKS
     Route: 058
     Dates: start: 20160815
  5. NIFEDIPINE. [Suspect]
     Active Substance: NIFEDIPINE
     Indication: TOCOLYSIS
     Dosage: UNK
     Route: 048
     Dates: start: 201701
  6. SIMPONI [Suspect]
     Active Substance: GOLIMUMAB
     Indication: COLITIS ULCERATIVE
     Dosage: 150 MG, EVERY THREE WEEKS
     Route: 058
     Dates: start: 20160930
  7. PENTASA [Concomitant]
     Active Substance: MESALAMINE
     Indication: COLITIS ULCERATIVE
     Dosage: 2 G, ONCE DAILY
     Route: 048
     Dates: start: 20161115

REACTIONS (2)
  - Maternal exposure during pregnancy [Unknown]
  - Cervix disorder [Not Recovered/Not Resolved]

NARRATIVE: CASE EVENT DATE: 20170201
